FAERS Safety Report 6389363-8 (Version None)
Quarter: 2009Q4

REPORT INFORMATION
  Report Type: 
  Country: None (occurrence: None)
  Receive Date: 20091003
  Receipt Date: 20090916
  Transmission Date: 20100525
  Serious: Yes (Congenital Anomaly, Other)
  Sender: FDA-Public Use
  Company Number: USA-09-0015-CRN2

PATIENT
  Sex: Male

DRUGS (1)
  1. CRINONE [Suspect]
     Dosage: 8%, TWICE DAILY THROUGH 10 WEEKS PREG.

REACTIONS (2)
  - ANKYLOGLOSSIA CONGENITAL [None]
  - MATERNAL DRUGS AFFECTING FOETUS [None]
